FAERS Safety Report 19419989 (Version 1)
Quarter: 2021Q2

REPORT INFORMATION
  Report Type: Spontaneous
  Country: GB (occurrence: GB)
  Receive Date: 20210615
  Receipt Date: 20210615
  Transmission Date: 20210717
  Serious: Yes (Life-Threatening)
  Sender: FDA-Public Use
  Company Number: GB-MYLANLABS-2021M1034774

PATIENT
  Age: 25 Year
  Sex: Male
  Weight: 97.06 kg

DRUGS (2)
  1. SERTRALINE [Concomitant]
     Active Substance: SERTRALINE HYDROCHLORIDE
     Indication: ILL-DEFINED DISORDER
     Dosage: UNK
  2. MINOCYCLINE [Suspect]
     Active Substance: MINOCYCLINE HYDROCHLORIDE
     Indication: SKIN INFECTION
     Dosage: 100 MILLIGRAM
     Route: 048
     Dates: start: 20210516, end: 20210603

REACTIONS (3)
  - Insomnia [Recovering/Resolving]
  - Anxiety [Recovering/Resolving]
  - Depression suicidal [Recovering/Resolving]
